FAERS Safety Report 19649639 (Version 3)
Quarter: 2022Q3

REPORT INFORMATION
  Report Type: Report from Study
  Country: US (occurrence: US)
  Receive Date: 20210802
  Receipt Date: 20220716
  Transmission Date: 20221027
  Serious: Yes (Hospitalization, Other)
  Sender: FDA-Public Use
  Company Number: US-TAKEDA-US201927574

PATIENT
  Sex: Female

DRUGS (1)
  1. HUMAN IMMUNOGLOBULIN G [Suspect]
     Active Substance: HUMAN IMMUNOGLOBULIN G
     Indication: Selective IgG subclass deficiency
     Dosage: UNK
     Route: 042

REACTIONS (5)
  - Hip arthroplasty [Recovering/Resolving]
  - Pneumonia [Unknown]
  - Dermatitis contact [Unknown]
  - Therapy interrupted [Unknown]
  - Insurance issue [Unknown]
